FAERS Safety Report 5086417-3 (Version None)
Quarter: 2006Q3

REPORT INFORMATION
  Report Type: 
  Country: None (occurrence: None)
  Receive Date: 20060703
  Receipt Date: 20060320
  Transmission Date: 20061208
  Serious: No
  Sender: FDA-Public Use
  Company Number: 2006S1002501

PATIENT
  Age: 19 Year
  Sex: Male

DRUGS (7)
  1. CLOZAPINE [Suspect]
     Indication: SCHIZOPHRENIA
     Dosage: 700 MG;HS;ORAL
     Route: 048
     Dates: start: 20051201
  2. FLUOXETINE HYDROCHLORIDE [Concomitant]
  3. GABAPENTIN [Concomitant]
  4. BENZTROPINE MESYLATE [Concomitant]
  5. HYDROXYZINE EMBONATE [Concomitant]
  6. HALOPERIDOL [Concomitant]
  7. DESMOPRESSIN [Concomitant]

REACTIONS (1)
  - GRANULOCYTOPENIA [None]
